FAERS Safety Report 7157083-8 (Version None)
Quarter: 2010Q4

REPORT INFORMATION
  Report Type: 
  Country: None (occurrence: None)
  Receive Date: 20101214
  Receipt Date: 20091223
  Transmission Date: 20110411
  Serious: No
  Sender: FDA-Public Use
  Company Number: US-ASTRAZENECA-2009SE33412

PATIENT
  Age: 88 Year
  Sex: Female
  Weight: 66.7 kg

DRUGS (1)
  1. CRESTOR [Suspect]
     Route: 048
     Dates: start: 20090101

REACTIONS (3)
  - ARTHRALGIA [None]
  - BACK PAIN [None]
  - HEPATIC ENZYME INCREASED [None]
